FAERS Safety Report 22318528 (Version 2)
Quarter: 2023Q2

REPORT INFORMATION
  Report Type: Other
  Country: US (occurrence: None)
  Receive Date: 20230515
  Receipt Date: 20230516
  Transmission Date: 20230722
  Serious: Yes (Hospitalization)
  Sender: FDA-Public Use
  Company Number: US-ROCHE-3348694

PATIENT
  Age: 65 Year
  Sex: Female

DRUGS (4)
  1. OCREVUS [Suspect]
     Active Substance: OCRELIZUMAB
     Indication: Primary progressive multiple sclerosis
     Dosage: DATE OF TREATMENT: 02/NOV/2020, 16/NOV/2020, 01/NOV/2021, 31/OCT/2022, 02/MAY/2022, 31/OCT/2022, 03/
     Route: 042
     Dates: start: 20201102
  2. AZITHROMYCIN [Concomitant]
     Active Substance: AZITHROMYCIN
  3. ERYTHROMYCIN [Concomitant]
     Active Substance: ERYTHROMYCIN
  4. CEDAR [Concomitant]

REACTIONS (2)
  - COVID-19 pneumonia [Unknown]
  - Dyspnoea [Unknown]
